FAERS Safety Report 14561558 (Version 1)
Quarter: 2018Q1

REPORT INFORMATION
  Report Type: Spontaneous
  Country: US (occurrence: US)
  Receive Date: 20180222
  Receipt Date: 20180222
  Transmission Date: 20180509
  Serious: No
  Sender: FDA-Public Use
  Company Number: US-TEVA-739869ACC

PATIENT
  Age: 62 Year
  Sex: Female
  Weight: 50.34 kg

DRUGS (10)
  1. RESTASIS [Concomitant]
     Active Substance: CYCLOSPORINE
     Dates: start: 2007
  2. CALCIUM [Concomitant]
     Active Substance: CALCIUM
  3. VAGIFEM [Concomitant]
     Active Substance: ESTRADIOL
     Dates: start: 2007
  4. FISH OIL [Concomitant]
     Active Substance: FISH OIL
  5. VITAMIN B COMPLEX [Concomitant]
     Active Substance: CYANOCOBALAMIN\DEXPANTHENOL\NIACINAMIDE\PYRIDOXINE HYDROCHLORIDE\RIBOFLAVIN 5^-PHOSPHATE SODIUM\THIAMINE HYDROCHLORIDE\VITAMIN B COMPLEX
  6. BABY ASPIRIN [Concomitant]
     Active Substance: ASPIRIN
  7. MULTIVITAMINS, PLAIN [Concomitant]
     Active Substance: VITAMINS
  8. CETIRIZINE W/PSEUDOEPHEDRINE ER 176 [Suspect]
     Active Substance: CETIRIZINE HYDROCHLORIDE\PSEUDOEPHEDRINE HYDROCHLORIDE
     Indication: MIDDLE EAR EFFUSION
     Dosage: 1 DOSAGE FORMS DAILY; 1 DF = 120 MG PSEUDOEPHEDRINE HYDROCHLORIDE + 5 MG CETIRIZINE HYDROCHOLRIDE
     Route: 048
     Dates: start: 20170131, end: 20170201
  9. VITAMIN D3 [Concomitant]
     Active Substance: CHOLECALCIFEROL
  10. GLUCOSAMINE CHONDROITIN [Concomitant]
     Active Substance: CHONDROITIN SULFATE (BOVINE)\GLUCOSAMINE HYDROCHLORIDE

REACTIONS (4)
  - Product use issue [Unknown]
  - Hypoaesthesia [Not Recovered/Not Resolved]
  - Dizziness [Recovered/Resolved]
  - Insomnia [Not Recovered/Not Resolved]

NARRATIVE: CASE EVENT DATE: 20170131
